FAERS Safety Report 4632205-9 (Version None)
Quarter: 2005Q2

REPORT INFORMATION
  Report Type: 
  Country: None (occurrence: None)
  Receive Date: 20050411
  Receipt Date: 20030317
  Transmission Date: 20051028
  Serious: Yes (Death, Life-Threatening, Other)
  Sender: FDA-Public Use
  Company Number: US-AMGEN-US032476

PATIENT
  Sex: Female
  Weight: 54.9 kg

DRUGS (14)
  1. ENBREL [Suspect]
     Indication: RHEUMATOID ARTHRITIS
     Route: 058
     Dates: start: 19990101, end: 20030217
  2. IMURAN [Suspect]
     Dates: start: 19930101, end: 20030131
  3. FOSAMAX [Concomitant]
  4. PREDNISONE TAB [Concomitant]
     Dates: start: 20030101, end: 20030131
  5. FLEXERIL [Concomitant]
  6. DARVOCET-N 100 [Concomitant]
  7. PLAQUENIL [Concomitant]
     Dates: start: 19900101
  8. PLAQUENIL [Concomitant]
     Dates: start: 20030101
  9. MAXZIDE [Concomitant]
     Route: 048
  10. PROZAC [Concomitant]
  11. PROTONIX [Concomitant]
  12. MYADEC [Concomitant]
  13. DARVOCET-N 100 [Concomitant]
  14. BACITRACIN [Concomitant]
     Route: 061

REACTIONS (8)
  - ANAL FISTULA [None]
  - ANAL ULCER [None]
  - CARDIOMYOPATHY [None]
  - DIFFUSE LARGE B-CELL LYMPHOMA [None]
  - HAEMORRHOIDS [None]
  - INTERSTITIAL LUNG DISEASE [None]
  - LUNG NEOPLASM [None]
  - SALIVARY GLAND NEOPLASM [None]
